FAERS Safety Report 11490879 (Version 3)
Quarter: 2015Q3

REPORT INFORMATION
  Report Type: Spontaneous
  Country: CA (occurrence: CA)
  Receive Date: 20150910
  Receipt Date: 20150929
  Transmission Date: 20151125
  Serious: Yes (Hospitalization, Other)
  Sender: FDA-Public Use
  Company Number: CA-AMGEN-CANSP2015093585

PATIENT
  Age: 3 Year
  Sex: Female
  Weight: 64 kg

DRUGS (11)
  1. TOCILIZUMAB [Suspect]
     Active Substance: TOCILIZUMAB
     Indication: PRODUCT USED FOR UNKNOWN INDICATION
     Dosage: 280 MG, Q2WK
     Route: 042
     Dates: start: 201110, end: 201203
  2. ADALIMUMAB [Suspect]
     Active Substance: ADALIMUMAB
     Indication: PRODUCT USED FOR UNKNOWN INDICATION
     Dosage: UNK
     Route: 065
     Dates: start: 200804, end: 200806
  3. ANAKINRA [Suspect]
     Active Substance: ANAKINRA
     Indication: PRODUCT USED FOR UNKNOWN INDICATION
     Dosage: 50 MG, QD
     Route: 058
     Dates: start: 200808, end: 201007
  4. ENBREL [Suspect]
     Active Substance: ETANERCEPT
     Dosage: 25 MG, 2 TIMES/WK
     Route: 058
     Dates: start: 200703, end: 200706
  5. HYDROXYCHLOROQUINE [Suspect]
     Active Substance: HYDROXYCHLOROQUINE
     Indication: PRODUCT USED FOR UNKNOWN INDICATION
     Dosage: 5 MG/KG, QD
     Route: 048
  6. ABATACEPT [Suspect]
     Active Substance: ABATACEPT
     Indication: PRODUCT USED FOR UNKNOWN INDICATION
     Dosage: 250 MG, QMO
     Route: 042
     Dates: start: 201007, end: 201009
  7. ENBREL [Suspect]
     Active Substance: ETANERCEPT
     Indication: PRODUCT USED FOR UNKNOWN INDICATION
     Dosage: 12.5 MG, QWK
     Route: 058
     Dates: start: 200608
  8. SULFASALAZINE. [Suspect]
     Active Substance: SULFASALAZINE
     Indication: PRODUCT USED FOR UNKNOWN INDICATION
     Dosage: 250 MG, QD
     Route: 065
  9. INFLIXIMAB [Suspect]
     Active Substance: INFLIXIMAB
     Indication: PRODUCT USED FOR UNKNOWN INDICATION
     Dosage: 3 MG, Q6WK
     Route: 042
     Dates: start: 200707, end: 200803
  10. PREDNISONE. [Concomitant]
     Active Substance: PREDNISONE
  11. METHOTREXATE [Suspect]
     Active Substance: METHOTREXATE
     Indication: PRODUCT USED FOR UNKNOWN INDICATION
     Dosage: 15 MG/M2, QWK
     Route: 058

REACTIONS (13)
  - Mobility decreased [Unknown]
  - Diarrhoea [Unknown]
  - Juvenile idiopathic arthritis [Unknown]
  - Activities of daily living impaired [Unknown]
  - Human antichimeric antibody positive [Unknown]
  - Psoriasis [Unknown]
  - No therapeutic response [Unknown]
  - Nausea [Unknown]
  - Dizziness [Unknown]
  - Septic shock [Unknown]
  - Drug intolerance [Unknown]
  - Vomiting [Unknown]
  - Wheelchair user [Unknown]

NARRATIVE: CASE EVENT DATE: 2014
